FAERS Safety Report 12140094 (Version 2)
Quarter: 2016Q1

REPORT INFORMATION
  Report Type: Spontaneous
  Country: CA (occurrence: CA)
  Receive Date: 20160303
  Receipt Date: 20160308
  Transmission Date: 20160526
  Serious: Yes (Hospitalization)
  Sender: FDA-Public Use
  Company Number: CA-SUN PHARMACEUTICAL INDUSTRIES LTD-2016US-112565

PATIENT
  Age: 61 Year
  Sex: Male

DRUGS (1)
  1. ALLOPURINOL. [Suspect]
     Active Substance: ALLOPURINOL
     Indication: GOUT
     Dosage: UNK
     Route: 065

REACTIONS (4)
  - Toxic epidermal necrolysis [Recovering/Resolving]
  - Eye inflammation [Recovering/Resolving]
  - Stevens-Johnson syndrome [Recovering/Resolving]
  - Symblepharon [Recovering/Resolving]
